FAERS Safety Report 9135119 (Version 1)
Quarter: 2013Q1

REPORT INFORMATION
  Report Type: Spontaneous
  Country: US (occurrence: US)
  Receive Date: 20130304
  Receipt Date: 20130304
  Transmission Date: 20140127
  Serious: No
  Sender: FDA-Public Use
  Company Number: US-COVIDIEN/TYCO HEALTHCARE/MALLINCKRODT-T201201528

PATIENT
  Sex: Male
  Weight: 85.71 kg

DRUGS (2)
  1. RESTORIL [Suspect]
     Indication: INSOMNIA
     Dosage: 30 MG, 1-2  CAPSULES HS
     Route: 048
     Dates: start: 201110, end: 201204
  2. LORAZEPAM [Concomitant]
     Dosage: 1 MG, 1-2
     Route: 048

REACTIONS (2)
  - Insomnia [Not Recovered/Not Resolved]
  - Middle insomnia [Not Recovered/Not Resolved]
